FAERS Safety Report 7610248-0 (Version None)
Quarter: 2011Q3

REPORT INFORMATION
  Report Type: 
  Country: None (occurrence: None)
  Receive Date: 20110713
  Receipt Date: 20110713
  Transmission Date: 20111222
  Serious: No
  Sender: FDA-Public Use
  Company Number: None

PATIENT
  Age: 16 Year
  Sex: Female
  Weight: 37 kg

DRUGS (1)
  1. VANCOMYCIN [Suspect]
     Indication: DEVICE RELATED INFECTION
     Dosage: 750MG IV ONE TIME ONLY

REACTIONS (3)
  - PRURITUS [None]
  - INFUSION SITE REACTION [None]
  - RASH ERYTHEMATOUS [None]
